FAERS Safety Report 10102306 (Version 1)
Quarter: 2014Q2

REPORT INFORMATION
  Report Type: Report from Study
  Country: FR (occurrence: FR)
  Receive Date: 20140424
  Receipt Date: 20140424
  Transmission Date: 20141212
  Serious: Yes (Other)
  Sender: FDA-Public Use
  Company Number: FR-TEVA-477513USA

PATIENT
  Age: 69 Year
  Sex: Male

DRUGS (18)
  1. BENDAMUSTINE [Suspect]
     Indication: PLASMA CELL MYELOMA
     Dosage: UNKNOWN
     Route: 042
     Dates: start: 201205, end: 201308
  2. VELCADE [Suspect]
     Indication: PLASMA CELL MYELOMA
     Dosage: UNKNOWN
     Route: 042
     Dates: start: 20110104
  3. VELCADE [Suspect]
     Dosage: UNKNOWN
     Route: 042
     Dates: start: 201103
  4. VELCADE [Suspect]
     Dosage: UNKNOWN
     Route: 042
     Dates: start: 20110809
  5. VELCADE [Suspect]
     Dosage: UNKNOWN
     Route: 042
     Dates: start: 20111027
  6. VELCADE [Suspect]
     Dosage: UNKNOWN
     Route: 042
     Dates: start: 20111227
  7. VELCADE [Suspect]
     Dosage: UNKNOWN
     Route: 042
     Dates: start: 20120131
  8. DEXAMETHASONE [Suspect]
     Indication: PLASMA CELL MYELOMA
     Dosage: UNKNOWN
     Dates: start: 20110104
  9. DEXAMETHASONE [Suspect]
     Dosage: UNKNOWN
     Dates: start: 201103
  10. DEXAMETHASONE [Suspect]
     Dosage: UNKNOWN
     Dates: start: 20110809
  11. DEXAMETHASONE [Suspect]
     Dosage: UNKNOWN
     Dates: start: 20111024
  12. DEXAMETHASONE [Suspect]
     Dosage: UNKNOWN
     Dates: start: 20111227
  13. DEXAMETHASONE [Suspect]
     Dosage: UNKNOWN
     Dates: start: 201205
  14. REVLIMID [Suspect]
     Indication: PLASMA CELL MYELOMA
     Dosage: UNKNOWN
     Dates: start: 201103
  15. REVLIMID [Suspect]
     Dosage: UNKNOWN
     Dates: start: 20110809
  16. REVLIMID [Suspect]
     Dosage: UNKNOWN
     Dates: start: 20111024
  17. REVLIMID [Suspect]
     Dosage: UNKNOWN
     Dates: start: 20111227
  18. REVLIMID [Suspect]
     Dosage: UNKNOWN
     Dates: start: 20120131

REACTIONS (1)
  - B-cell lymphoma [Unknown]
